FAERS Safety Report 9611735 (Version 1)
Quarter: 2013Q4

REPORT INFORMATION
  Report Type: Spontaneous
  Country: US (occurrence: US)
  Receive Date: 20131010
  Receipt Date: 20131010
  Transmission Date: 20140711
  Serious: Yes (Other)
  Sender: FDA-Public Use
  Company Number: US-PFIZER INC-2013286425

PATIENT
  Age: 63 Year
  Sex: Female

DRUGS (3)
  1. ENBREL [Suspect]
     Indication: PSORIASIS
     Dosage: UNK UNK, 2 TIMES/WK
     Route: 065
     Dates: start: 20050401
  2. METHOTREXATE SODIUM [Suspect]
     Indication: PSORIASIS
     Dosage: UNK
     Route: 065
     Dates: end: 201307
  3. REMICAID [Suspect]
     Indication: PSORIASIS
     Dosage: UNK
     Route: 065
     Dates: end: 201304

REACTIONS (3)
  - Hepatic cirrhosis [Not Recovered/Not Resolved]
  - Psoriasis [Not Recovered/Not Resolved]
  - Drug effect incomplete [Not Recovered/Not Resolved]
